FAERS Safety Report 16654046 (Version 1)
Quarter: 2019Q3

REPORT INFORMATION
  Report Type: Spontaneous
  Country: CA (occurrence: CA)
  Receive Date: 20190731
  Receipt Date: 20190731
  Transmission Date: 20191004
  Serious: Yes (Life-Threatening, Hospitalization, Other)
  Sender: FDA-Public Use
  Company Number: CA-NOVOPROD-675504

PATIENT
  Age: 41 Year
  Sex: Female

DRUGS (8)
  1. DEXTROSE. [Suspect]
     Active Substance: DEXTROSE
     Dosage: 50 PERCENT IV DRIP
     Route: 042
  2. NOVORAPID [Suspect]
     Active Substance: INSULIN ASPART
     Indication: PRODUCT USED FOR UNKNOWN INDICATION
     Dosage: 300 IU
     Route: 058
  3. GLUCOSE [Suspect]
     Active Substance: DEXTROSE
     Dosage: 12.0 ML
     Route: 065
  4. CLONAZEPAM. [Suspect]
     Active Substance: CLONAZEPAM
     Indication: PRODUCT USED FOR UNKNOWN INDICATION
     Dosage: 2 MG
     Route: 048
  5. GLUCOSE [Suspect]
     Active Substance: DEXTROSE
     Indication: PRODUCT USED FOR UNKNOWN INDICATION
     Dosage: 2000 ML
     Route: 065
  6. ZOPICLONE [Suspect]
     Active Substance: ZOPICLONE
     Indication: PRODUCT USED FOR UNKNOWN INDICATION
     Dosage: 45 MG
     Route: 048
  7. DEXTROSE. [Suspect]
     Active Substance: DEXTROSE
     Indication: HYPOGLYCAEMIA
     Dosage: 10 PERCENT IV DRIP
     Route: 042
  8. GLUCOSE [Suspect]
     Active Substance: DEXTROSE
     Dosage: 50 ML
     Route: 065

REACTIONS (10)
  - Lethargy [Recovered/Resolved]
  - Somnolence [Recovered/Resolved]
  - Hypoglycaemia [Recovered/Resolved]
  - Hyperhidrosis [Recovered/Resolved]
  - Ataxia [Recovered/Resolved]
  - Blood potassium decreased [Recovered/Resolved]
  - Blood pressure decreased [Recovered/Resolved]
  - Oedema peripheral [Recovered/Resolved]
  - Intentional overdose [Unknown]
  - Suicide attempt [Recovered/Resolved]
